FAERS Safety Report 18914659 (Version 1)
Quarter: 2021Q1

REPORT INFORMATION
  Report Type: Spontaneous
  Country: US (occurrence: US)
  Receive Date: 20210218
  Receipt Date: 20210218
  Transmission Date: 20210420
  Serious: No
  Sender: FDA-Public Use
  Company Number: None

PATIENT
  Sex: Female

DRUGS (16)
  1. DOK [Concomitant]
     Active Substance: DOCUSATE SODIUM
  2. DILANTIN INFATABS [Concomitant]
     Active Substance: PHENYTOIN
  3. AMBRISENTAN 10MG TAB [Suspect]
     Active Substance: AMBRISENTAN
     Indication: PULMONARY ARTERIAL HYPERTENSION
     Route: 048
  4. ORENITRAM [Concomitant]
     Active Substance: TREPROSTINIL
  5. ONE A DAY WOMENS PRENATAL [Concomitant]
  6. CYMBALTA [Concomitant]
     Active Substance: DULOXETINE HYDROCHLORIDE
  7. SEROQUEL [Concomitant]
     Active Substance: QUETIAPINE FUMARATE
  8. DEPAKOTE [Concomitant]
     Active Substance: DIVALPROEX SODIUM
  9. SILDENAFIL CITRATE. [Concomitant]
     Active Substance: SILDENAFIL CITRATE
  10. LASIX [Concomitant]
     Active Substance: FUROSEMIDE
  11. PANTOPRAZOLE SODIUM. [Concomitant]
     Active Substance: PANTOPRAZOLE SODIUM
  12. ASPIRIN EC [Concomitant]
     Active Substance: ASPIRIN
  13. LORATADINE. [Concomitant]
     Active Substance: LORATADINE
  14. DILANTIN [Concomitant]
     Active Substance: PHENYTOIN
  15. OXYCODONE HCL CR [Concomitant]
     Active Substance: OXYCODONE HYDROCHLORIDE
  16. GABAPENTIN. [Concomitant]
     Active Substance: GABAPENTIN

REACTIONS (4)
  - Amnesia [None]
  - Headache [None]
  - Feeding disorder [None]
  - Malaise [None]
